FAERS Safety Report 24687605 (Version 1)
Quarter: 2024Q4

REPORT INFORMATION
  Report Type: Spontaneous
  Country: US (occurrence: None)
  Receive Date: 20241202
  Receipt Date: 20241202
  Transmission Date: 20250114
  Serious: Yes (Hospitalization)
  Sender: Public
  Company Number: None

PATIENT
  Age: 47 Year
  Sex: Female
  Weight: 93.6 kg

DRUGS (1)
  1. XOLAIR [Suspect]
     Active Substance: OMALIZUMAB
     Indication: Urticaria
     Dosage: 300 MG 21 DAYS SUBCUTANEOUS ?
     Route: 058
     Dates: start: 20240814, end: 20241108

REACTIONS (2)
  - Therapy cessation [None]
  - Hypersensitivity [None]

NARRATIVE: CASE EVENT DATE: 20241108
